FAERS Safety Report 13721082 (Version 1)
Quarter: 2017Q3

REPORT INFORMATION
  Report Type: Spontaneous
  Country: US (occurrence: US)
  Receive Date: 20170705
  Receipt Date: 20170705
  Transmission Date: 20171127
  Serious: Yes (Hospitalization, Disabling)
  Sender: FDA-Public Use
  Company Number: None

PATIENT
  Age: 61 Year
  Sex: Male
  Weight: 90 kg

DRUGS (10)
  1. BIPAP [Concomitant]
     Active Substance: DEVICE
  2. CAREIVIDOL [Concomitant]
  3. FLUTICASONE. [Concomitant]
     Active Substance: FLUTICASONE
  4. COUMADIN [Concomitant]
     Active Substance: WARFARIN SODIUM
  5. BUMETADINE [Concomitant]
     Active Substance: BUMETANIDE
  6. SIMVASTATON [Concomitant]
  7. TRAMADOL. [Concomitant]
     Active Substance: TRAMADOL
  8. HEPARIN [Suspect]
     Active Substance: HEPARIN SODIUM
  9. SYNTHROID [Concomitant]
     Active Substance: LEVOTHYROXINE SODIUM
  10. LORSARTIN [Concomitant]

REACTIONS (4)
  - Finger amputation [None]
  - Toe amputation [None]
  - Heparin-induced thrombocytopenia [None]
  - Thrombosis [None]

NARRATIVE: CASE EVENT DATE: 20130401
